FAERS Safety Report 16899173 (Version 4)
Quarter: 2019Q4

REPORT INFORMATION
  Report Type: Spontaneous
  Country: US (occurrence: US)
  Receive Date: 20191009
  Receipt Date: 20191122
  Transmission Date: 20200122
  Serious: No
  Sender: FDA-Public Use
  Company Number: US-PFIZER INC-2019434075

PATIENT
  Age: 54 Year
  Sex: Female
  Weight: 59 kg

DRUGS (3)
  1. DUAVEE [Suspect]
     Active Substance: BAZEDOXIFENE ACETATE\ESTROGENS, CONJUGATED
     Indication: HORMONE REPLACEMENT THERAPY
     Dosage: UNK, 1X/DAY (0.45 MG/ 20 MG)
     Route: 048
     Dates: start: 20190730
  2. DUAVEE [Suspect]
     Active Substance: BAZEDOXIFENE ACETATE\ESTROGENS, CONJUGATED
     Indication: MENOPAUSE
     Dosage: 20 MG, 1X/DAY
     Route: 048
  3. CYMBALTA [Concomitant]
     Active Substance: DULOXETINE HYDROCHLORIDE
     Indication: ANXIETY
     Dosage: 20 MG, 1X/DAY
     Route: 048

REACTIONS (10)
  - Paraesthesia [Recovering/Resolving]
  - Ocular discomfort [Recovering/Resolving]
  - Ear discomfort [Recovering/Resolving]
  - Migraine [Recovering/Resolving]
  - Disease recurrence [Recovering/Resolving]
  - Burning sensation [Recovering/Resolving]
  - Poor quality sleep [Recovering/Resolving]
  - Headache [Recovering/Resolving]
  - Visual impairment [Unknown]
  - Hypoacusis [Recovering/Resolving]

NARRATIVE: CASE EVENT DATE: 20190820
